FAERS Safety Report 16971408 (Version 6)
Quarter: 2021Q4

REPORT INFORMATION
  Report Type: Report from Study
  Country: TW (occurrence: None)
  Receive Date: 20191029
  Receipt Date: 20211223
  Transmission Date: 20220303
  Serious: Yes (Hospitalization)
  Sender: FDA-Public Use
  Company Number: TW-ROCHE-2327255

PATIENT
  Age: 61 Year
  Sex: Female
  Weight: 63.5 kg

DRUGS (8)
  1. ENTRECTINIB [Suspect]
     Active Substance: ENTRECTINIB
     Indication: Non-small cell lung cancer metastatic
     Dosage: ON 20/MAY/2019, SHE RECEIVED THE MOST RECENT DOSE 600 MG OF ENTRECTINIB PRIOR TO THE ADVERSE EVENT O
     Route: 048
     Dates: start: 20190423
  2. DIOVAN [Concomitant]
     Active Substance: VALSARTAN
     Indication: Hypertension
     Route: 048
     Dates: start: 20190404, end: 20190423
  3. NORVASC [Concomitant]
     Active Substance: AMLODIPINE BESYLATE
     Indication: Hypertension
     Route: 048
     Dates: start: 20190404
  4. ACETYLCYSTEINE [Concomitant]
     Active Substance: ACETYLCYSTEINE
     Indication: Cough
     Route: 048
     Dates: start: 20190404
  5. HYDROXOCOBALAMIN [Concomitant]
     Active Substance: HYDROXOCOBALAMIN
     Route: 028
     Dates: start: 20190521
  6. VITAMIN B COMPLEX;VITAMIN C [Concomitant]
     Indication: Bell^s palsy
     Dosage: 1 TABLET
     Route: 048
     Dates: start: 20190505, end: 20190611
  7. HYDROXOCOBALAMIN [Concomitant]
     Active Substance: HYDROXOCOBALAMIN
     Indication: Chemotherapy
     Route: 030
     Dates: start: 20190521
  8. NEXIUM [Concomitant]
     Active Substance: ESOMEPRAZOLE MAGNESIUM
     Indication: Prophylaxis
     Route: 048
     Dates: start: 20190524, end: 20190625

REACTIONS (1)
  - Interstitial lung disease [Recovered/Resolved]

NARRATIVE: CASE EVENT DATE: 20190522
